FAERS Safety Report 10066353 (Version 1)
Quarter: 2014Q2

REPORT INFORMATION
  Report Type: Spontaneous
  Country: DE (occurrence: DE)
  Receive Date: 20140408
  Receipt Date: 20140408
  Transmission Date: 20141212
  Serious: Yes (Other)
  Sender: FDA-Public Use
  Company Number: DE-WATSON-2013-25018

PATIENT
  Sex: Male
  Weight: 66 kg

DRUGS (2)
  1. RISPERIDONE [Suspect]
     Indication: AUTISM
     Route: 065
     Dates: start: 2010
  2. RISPERIDONE [Suspect]
     Indication: AUTISM

REACTIONS (1)
  - Growth retardation [Unknown]
